FAERS Safety Report 10785254 (Version 1)
Quarter: 2015Q1

REPORT INFORMATION
  Report Type: Spontaneous
  Country: US (occurrence: US)
  Receive Date: 20150211
  Receipt Date: 20150211
  Transmission Date: 20150721
  Serious: Yes (Other)
  Sender: FDA-Public Use
  Company Number: US-SUN PHARMACEUTICAL INDUSTRIES LTD-2015SUN00342

PATIENT

DRUGS (5)
  1. CARBIDOPA + LEVODOPA IR TABS 25MG/100MG [Suspect]
     Active Substance: CARBIDOPA\LEVODOPA
     Indication: PARKINSON^S DISEASE
     Dosage: 25/100 MG, TWO-AND-HALF PILLS EVERY 3 H GIVEN FIVE TIMES A DAY
     Route: 065
  2. APOMORPHINE [Concomitant]
     Active Substance: APOMORPHINE
     Indication: PARKINSON^S DISEASE
     Dosage: 5 TIMES A DAY (AS NEEDED)
  3. CARBIDOPA + LEVODOPA IR TABS 25MG/100MG [Suspect]
     Active Substance: CARBIDOPA\LEVODOPA
     Dosage: TWO PILLS EVERY 2 HR FOR A TOTAL OF FIVE TO SIX DOSES
     Route: 065
  4. CARBIDOPA + LEVODOPA IR TABS 25MG/100MG [Suspect]
     Active Substance: CARBIDOPA\LEVODOPA
     Dosage: ONE AND HALF PILLS THREE TIMES A DAY
     Route: 065
  5. RASAGILINE [Concomitant]
     Active Substance: RASAGILINE
     Indication: PARKINSON^S DISEASE
     Dosage: 1 MG, QD

REACTIONS (1)
  - Dopamine dysregulation syndrome [Recovered/Resolved]
